FAERS Safety Report 7555730-X (Version None)
Quarter: 2011Q2

REPORT INFORMATION
  Report Type: 
  Country: None (occurrence: None)
  Receive Date: 20110617
  Receipt Date: 20110609
  Transmission Date: 20111010
  Serious: Yes (Other)
  Sender: FDA-Public Use
  Company Number: US-AMGEN-USASP2011029988

PATIENT
  Age: 61 Year
  Sex: Female

DRUGS (1)
  1. ENBREL [Suspect]
     Indication: RHEUMATOID ARTHRITIS
     Dosage: 25 MG, 2 TIMES/WK
     Dates: start: 20110101, end: 20110301

REACTIONS (7)
  - EXTRASYSTOLES [None]
  - OEDEMA PERIPHERAL [None]
  - SWELLING [None]
  - VARICOSE VEIN [None]
  - FACE OEDEMA [None]
  - HEART RATE INCREASED [None]
  - CHEST DISCOMFORT [None]
